FAERS Safety Report 16158319 (Version 1)
Quarter: 2019Q2

REPORT INFORMATION
  Report Type: Spontaneous
  Country: DE (occurrence: DE)
  Receive Date: 20190404
  Receipt Date: 20190404
  Transmission Date: 20190711
  Serious: Yes (Other)
  Sender: FDA-Public Use
  Company Number: DE-MYLANLABS-2019M1030535

PATIENT
  Age: 66 Year
  Sex: Female

DRUGS (2)
  1. IBEROGAST [Suspect]
     Active Substance: HERBALS
     Indication: FLATULENCE
     Dosage: 20 GTT DROPS, TID (60 DROP, QD)
     Route: 048
     Dates: start: 20180518, end: 20180523
  2. ESCITALOPRAM [Suspect]
     Active Substance: ESCITALOPRAM OXALATE
     Indication: DEPRESSION
     Dosage: 20 MG, UNK
     Route: 048
     Dates: start: 20180513, end: 20180523

REACTIONS (1)
  - Anaphylactic shock [Recovered/Resolved with Sequelae]

NARRATIVE: CASE EVENT DATE: 20180523
